FAERS Safety Report 6436635-4 (Version None)
Quarter: 2009Q4

REPORT INFORMATION
  Report Type: 
  Country: None (occurrence: None)
  Receive Date: 20091111
  Receipt Date: 20091109
  Transmission Date: 20100525
  Serious: Yes (Hospitalization)
  Sender: FDA-Public Use
  Company Number: TR-ROXANE LABORATORIES, INC.-2009-RO-01141RO

PATIENT
  Age: 28 Year
  Sex: Female

DRUGS (6)
  1. CITALOPRAM HYDROBROMIDE [Suspect]
     Indication: DEPRESSIVE SYMPTOM
  2. ETODOLAK [Suspect]
     Indication: DEPRESSIVE SYMPTOM
  3. DESOGESTREL AND ETHINYL ESTRADIOL [Suspect]
     Indication: MENSTRUAL DISORDER
     Route: 048
  4. ACETYLSALICYLIC ACID [Concomitant]
     Indication: CEREBRAL VASOCONSTRICTION
     Dosage: 300 MG
  5. ACETYLSALICYLIC ACID [Concomitant]
     Indication: CEREBRAL ISCHAEMIA
  6. VERAPAMIL [Concomitant]
     Indication: CEREBRAL VASOCONSTRICTION
     Dosage: 240 MG

REACTIONS (5)
  - CEREBRAL ISCHAEMIA [None]
  - CEREBRAL VASOCONSTRICTION [None]
  - FACIAL PALSY [None]
  - HEMIPARESIS [None]
  - HYPOAESTHESIA [None]
